FAERS Safety Report 9624902 (Version 2)
Quarter: 2013Q4

REPORT INFORMATION
  Report Type: Report from Study
  Country: RU (occurrence: RU)
  Receive Date: 20131016
  Receipt Date: 20131225
  Transmission Date: 20140711
  Serious: Yes (Death, Congenital Anomaly, Other)
  Sender: FDA-Public Use
  Company Number: RU-ROCHE-1287564

PATIENT
  Sex: 0

DRUGS (5)
  1. SAQUINAVIR [Suspect]
     Indication: PROPHYLAXIS AGAINST HIV INFECTION
     Route: 065
  2. ZIDOVUDIN [Suspect]
     Indication: PROPHYLAXIS AGAINST HIV INFECTION
     Route: 065
  3. STAVUDINE [Suspect]
     Indication: PROPHYLAXIS AGAINST HIV INFECTION
     Route: 065
  4. LAMIVUDIN [Suspect]
     Indication: PROPHYLAXIS AGAINST HIV INFECTION
     Route: 065
  5. RITONAVIR [Suspect]
     Indication: PRODUCT USED FOR UNKNOWN INDICATION
     Route: 065

REACTIONS (2)
  - Congenital central nervous system anomaly [Fatal]
  - Foetal exposure during pregnancy [Unknown]
